FAERS Safety Report 20311359 (Version 1)
Quarter: 2022Q1

REPORT INFORMATION
  Report Type: Spontaneous
  Country: CA (occurrence: CA)
  Receive Date: 20220107
  Receipt Date: 20220107
  Transmission Date: 20220423
  Serious: Yes (Life-Threatening, Hospitalization, Other)
  Sender: FDA-Public Use
  Company Number: CA-TEVA-2022-CA-1997115

PATIENT
  Age: 55 Year
  Sex: Male

DRUGS (14)
  1. FENTANYL [Suspect]
     Active Substance: FENTANYL
     Indication: Sedation
     Route: 065
  2. FENTANYL [Suspect]
     Active Substance: FENTANYL
     Indication: Analgesic therapy
  3. SERTRALINE [Suspect]
     Active Substance: SERTRALINE HYDROCHLORIDE
     Dosage: 200 MILLIGRAM DAILY;
  4. METOCLOPRAMIDE [Suspect]
     Active Substance: METOCLOPRAMIDE
     Indication: Feeding intolerance
     Dosage: 40 MILLIGRAM DAILY;
     Route: 042
  5. CLONIDINE [Concomitant]
     Active Substance: CLONIDINE
  6. DEXMEDETOMIDINE [Concomitant]
     Active Substance: DEXMEDETOMIDINE
  7. FRAGMIN [Concomitant]
     Active Substance: DALTEPARIN SODIUM
  8. HYDROMORPHONE [Concomitant]
     Active Substance: HYDROMORPHONE
  9. IPRATROPIUM [Concomitant]
     Active Substance: IPRATROPIUM
  10. LANSOPRAZOLE [Concomitant]
     Active Substance: LANSOPRAZOLE
  11. PIPERACILLIN SODIUM\TAZOBACTAM SODIUM [Concomitant]
     Active Substance: PIPERACILLIN SODIUM\TAZOBACTAM SODIUM
  12. QUETIAPINE [Concomitant]
     Active Substance: QUETIAPINE
  13. ALBUTEROL [Concomitant]
     Active Substance: ALBUTEROL
  14. SENNOSIDES [Concomitant]
     Active Substance: SENNOSIDES

REACTIONS (9)
  - Agitation [Unknown]
  - Clonus [Unknown]
  - Hyperreflexia [Unknown]
  - Hypertension [Unknown]
  - Hyperthermia [Unknown]
  - Serotonin syndrome [Unknown]
  - Tachycardia [Unknown]
  - Blood creatinine increased [Unknown]
  - Therapy change [Unknown]
